FAERS Safety Report 6686545-2 (Version None)
Quarter: 2010Q2

REPORT INFORMATION
  Report Type: 
  Country: None (occurrence: None)
  Receive Date: 20100419
  Receipt Date: 20100414
  Transmission Date: 20101027
  Serious: Yes (Life-Threatening, Hospitalization)
  Sender: FDA-Public Use
  Company Number: JP-ASTRAZENECA-2010SE11807

PATIENT
  Age: 19238 Day
  Sex: Male
  Weight: 57.8 kg

DRUGS (11)
  1. SEROQUEL [Suspect]
     Indication: INSOMNIA
     Route: 048
     Dates: start: 20100205, end: 20100215
  2. SEROQUEL [Suspect]
     Route: 048
     Dates: start: 20100129, end: 20100204
  3. SEROQUEL [Suspect]
     Route: 048
     Dates: start: 20100129
  4. MIRTAZAPINE [Suspect]
     Indication: DEPRESSION
     Route: 048
     Dates: start: 20091010, end: 20100215
  5. ROHYPNOL [Concomitant]
     Indication: INSOMNIA
     Route: 048
     Dates: start: 20090109, end: 20100215
  6. SORENTMIN [Concomitant]
     Indication: INSOMNIA
     Dates: start: 20090515, end: 20100215
  7. CALMDOWN [Concomitant]
     Indication: DEPRESSION
     Dates: start: 20100205, end: 20100215
  8. CONSTAN [Concomitant]
     Indication: DEPRESSION
     Dates: start: 20100108, end: 20100204
  9. MAGNESIUM OXIDE [Concomitant]
     Indication: CONSTIPATION
     Dates: start: 20091021, end: 20100215
  10. GASMOTIN [Concomitant]
     Indication: REFLUX OESOPHAGITIS
     Dates: start: 20051128, end: 20100215
  11. PARIET [Concomitant]
     Indication: REFLUX OESOPHAGITIS
     Dates: start: 20080829, end: 20100215

REACTIONS (2)
  - FALL [None]
  - RENAL FAILURE ACUTE [None]
